FAERS Safety Report 8113383 (Version 2)
Quarter: 2014Q1

REPORT INFORMATION
  Report Type: Spontaneous
  Country: US (occurrence: None)
  Receive Date: 20110810
  Receipt Date: 20130313
  Transmission Date: 20141002
  Serious: No
  Sender: FDA-Public Use
  Company Number: 1000021450

PATIENT
  Age: 68 Year
  Sex: Male

DRUGS (5)
  1. SAVELLA [Suspect]
     Indication: FIBROMYALGIA
     Dosage: 12.5 MG (12.5 MG, 1 IN 1 D), ORAL, 25 MG (12.5 MG, 2 IN 1 D), ORAL, 50 MG (25 MG, 2 IN 1 D), ORAL
     Route: 048
     Dates: start: 201104, end: 201104
  2. SAVELLA [Suspect]
     Indication: FIBROMYALGIA
     Dosage: 100 MG (50 MG, 2 IN 1 D), ORAL
     Route: 048
     Dates: start: 201104, end: 201104
  3. EYE DROPS (TETRYZOLINE HYDROCHLORIDE) (TETRYZOLINE HYDROCHLORIDE) [Concomitant]
  4. AMBIEN [Concomitant]
  5. PREMARIN (ESTROGEN) (ESTROGEN) [Concomitant]

REACTIONS (4)
  - Lip swelling [None]
  - Paraesthesia oral [None]
  - Dysgeusia [None]
  - Nausea [None]
